FAERS Safety Report 23878297 (Version 1)
Quarter: 2024Q2

REPORT INFORMATION
  Report Type: Spontaneous
  Country: US (occurrence: None)
  Receive Date: 20240520
  Receipt Date: 20240520
  Transmission Date: 20240716
  Serious: Yes (Hospitalization)
  Sender: FDA-Public Use
  Company Number: None

PATIENT
  Age: 30 Year
  Sex: Female

DRUGS (1)
  1. LEVOTHYROXINE [Suspect]
     Active Substance: LEVOTHYROXINE\LEVOTHYROXINE SODIUM
     Indication: Autoimmune thyroiditis

REACTIONS (8)
  - Chest pain [None]
  - Palpitations [None]
  - Palpitations [None]
  - Thyroid function test abnormal [None]
  - Nausea [None]
  - Retching [None]
  - Abdominal pain upper [None]
  - Dehydration [None]
